FAERS Safety Report 16629117 (Version 1)
Quarter: 2019Q3

REPORT INFORMATION
  Report Type: Spontaneous
  Country: US (occurrence: US)
  Receive Date: 20190725
  Receipt Date: 20190725
  Transmission Date: 20191004
  Serious: Yes (Other)
  Sender: FDA-Public Use
  Company Number: US-STRIDES ARCOLAB LIMITED-2019SP001966

PATIENT
  Age: 56 Year
  Sex: Male

DRUGS (12)
  1. CIDOFOVIR. [Concomitant]
     Active Substance: CIDOFOVIR
     Indication: POLYOMAVIRUS-ASSOCIATED NEPHROPATHY
  2. VALGANCICLOVIR. [Concomitant]
     Active Substance: VALGANCICLOVIR
     Indication: CYTOMEGALOVIRUS NEPHRITIS
     Dosage: UNK
     Route: 065
  3. CIDOFOVIR. [Concomitant]
     Active Substance: CIDOFOVIR
     Indication: BK VIRUS INFECTION
     Dosage: 0.25MG/KG BIWEEKLY
     Route: 042
  4. PREDNISOLONE. [Suspect]
     Active Substance: PREDNISOLONE
     Indication: RENAL TRANSPLANT
     Dosage: UNK
     Route: 065
  5. MYCOPHENOLATE MOFETIL. [Suspect]
     Active Substance: MYCOPHENOLATE MOFETIL
     Indication: RENAL TRANSPLANT
     Dosage: UNK
     Route: 065
  6. TACROLIMUS. [Suspect]
     Active Substance: TACROLIMUS
     Indication: RENAL TRANSPLANT
     Dosage: UNK
     Route: 065
  7. TACROLIMUS. [Suspect]
     Active Substance: TACROLIMUS
     Dosage: UNK, DOSE REDUCED
     Route: 065
  8. TRIMETHOPRIM SULFAMETHOXAZOLE [Concomitant]
     Active Substance: SULFAMETHOXAZOLE\TRIMETHOPRIM
     Indication: ANTIFUNGAL PROPHYLAXIS
     Dosage: UNK
     Route: 065
  9. ANTITHYMOCYTE IMMUNOGLOBULIN (RABBIT) [Suspect]
     Active Substance: LAPINE T-LYMPHOCYTE IMMUNE GLOBULIN
     Indication: RENAL TRANSPLANT
     Dosage: 4.7 MG/KG, UNKNOWN
     Route: 065
  10. VALGANCICLOVIR. [Concomitant]
     Active Substance: VALGANCICLOVIR
     Indication: ANTIVIRAL PROPHYLAXIS
     Dosage: UNK
     Route: 065
  11. MYCOPHENOLATE MOFETIL. [Suspect]
     Active Substance: MYCOPHENOLATE MOFETIL
     Dosage: 250 MG, QD
     Route: 065
  12. TACROLIMUS. [Suspect]
     Active Substance: TACROLIMUS
     Dosage: UNK, DOSE INCREASED
     Route: 065

REACTIONS (4)
  - Cytomegalovirus infection [Recovered/Resolved]
  - Cytomegalovirus nephritis [Recovered/Resolved]
  - Prostatitis [Recovered/Resolved]
  - Pyelonephritis chronic [Recovered/Resolved]
